FAERS Safety Report 25184526 (Version 5)
Quarter: 2025Q3

REPORT INFORMATION
  Report Type: Spontaneous
  Country: US (occurrence: US)
  Receive Date: 20250410
  Receipt Date: 20250715
  Transmission Date: 20251021
  Serious: Yes (Other)
  Sender: ABBVIE
  Company Number: US-ABBVIE-6213053

PATIENT
  Age: 78 Year
  Sex: Male

DRUGS (8)
  1. OZURDEX [Suspect]
     Active Substance: DEXAMETHASONE
     Indication: Eye disorder
     Dosage: FORM: KIT
     Route: 050
     Dates: start: 20240110
  2. OZURDEX [Suspect]
     Active Substance: DEXAMETHASONE
     Indication: Oedema
  3. METFORMIN [Concomitant]
     Active Substance: METFORMIN HYDROCHLORIDE
     Indication: Diabetes mellitus
     Route: 048
  4. LOSARTAN [Concomitant]
     Active Substance: LOSARTAN
     Indication: Hypertension
     Route: 048
  5. FINASTERIDE [Concomitant]
     Active Substance: FINASTERIDE
     Indication: Prostatic disorder
     Route: 048
  6. TAMSULOSIN [Concomitant]
     Active Substance: TAMSULOSIN
     Indication: Prostatic disorder
     Route: 048
  7. SIMVASTATIN [Concomitant]
     Active Substance: SIMVASTATIN
     Indication: Blood cholesterol
     Route: 048
  8. MINERALS\VITAMINS [Concomitant]
     Active Substance: MINERALS\VITAMINS
     Indication: Eye disorder
     Dosage: DOSE: 2
     Route: 048

REACTIONS (5)
  - Intraocular pressure increased [Not Recovered/Not Resolved]
  - Device defective [Unknown]
  - Oedema [Unknown]
  - Drug ineffective [Unknown]
  - Cataract [Unknown]

NARRATIVE: CASE EVENT DATE: 20250101
